FAERS Safety Report 7347490-2 (Version None)
Quarter: 2011Q1

REPORT INFORMATION
  Report Type: 
  Country: None (occurrence: None)
  Receive Date: 20110311
  Receipt Date: 20100204
  Transmission Date: 20110831
  Serious: No
  Sender: FDA-Public Use
  Company Number: US-BAYER-201013250NA

PATIENT
  Sex: Female
  Weight: 57 kg

DRUGS (1)
  1. MIRENA [Suspect]
     Indication: PRODUCT USED FOR UNKNOWN INDICATION
     Dosage: FERQUENCY: CONTINUOUS
     Route: 015
     Dates: end: 20100125

REACTIONS (8)
  - PELVIC PAIN [None]
  - VAGINAL HAEMORRHAGE [None]
  - POST PROCEDURAL HAEMORRHAGE [None]
  - BACK PAIN [None]
  - PROCEDURAL PAIN [None]
  - FEELING ABNORMAL [None]
  - VASODILATATION [None]
  - ABDOMINAL PAIN [None]
